FAERS Safety Report 5567623-8 (Version None)
Quarter: 2007Q4

REPORT INFORMATION
  Report Type: 
  Country: None (occurrence: None)
  Receive Date: 20071214
  Receipt Date: 20071208
  Transmission Date: 20080405
  Serious: Yes (Other)
  Sender: FDA-Public Use
  Company Number: 2007SP018675

PATIENT
  Age: 52 Year
  Sex: Male

DRUGS (3)
  1. PEG-INTRON [Suspect]
     Indication: HEPATITIS C
     Dosage: SC
     Route: 058
     Dates: start: 20070217
  2. RIBAVIRIN [Concomitant]
     Indication: HEPATITIS C
     Dosage: PO
     Route: 048
     Dates: start: 20070217
  3. TRAZODONE HCL [Concomitant]

REACTIONS (10)
  - CHEST PAIN [None]
  - DEHYDRATION [None]
  - DYSPNOEA [None]
  - FEELING ABNORMAL [None]
  - HEADACHE [None]
  - INSOMNIA [None]
  - NAUSEA [None]
  - PYREXIA [None]
  - SOMNOLENCE [None]
  - WHEEZING [None]
